FAERS Safety Report 9337534 (Version 2)
Quarter: 2013Q2

REPORT INFORMATION
  Report Type: Spontaneous
  Country: GB (occurrence: GB)
  Receive Date: 20130607
  Receipt Date: 20130611
  Transmission Date: 20140414
  Serious: Yes (Other)
  Sender: FDA-Public Use
  Company Number: GB-ABBOTT-13X-167-1100548-00

PATIENT
  Sex: Male

DRUGS (1)
  1. SODIUM VALPROATE [Suspect]
     Indication: EPILEPSY
     Dosage: UNKNOWN, TWICE A DAY
     Route: 048

REACTIONS (3)
  - Medication residue present [Unknown]
  - Epilepsy [Unknown]
  - Convulsion [Unknown]
